FAERS Safety Report 22911208 (Version 2)
Quarter: 2024Q3

REPORT INFORMATION
  Report Type: Spontaneous
  Country: US (occurrence: US)
  Receive Date: 20230906
  Receipt Date: 20240717
  Transmission Date: 20241016
  Serious: Yes (Other)
  Sender: AMERICAN REGENT
  Company Number: US-AMERICAN REGENT INC-2023001518

PATIENT
  Age: 76 Year
  Sex: Male

DRUGS (3)
  1. FERRIC CARBOXYMALTOSE [Suspect]
     Active Substance: FERRIC CARBOXYMALTOSE
     Indication: Cardiac failure
     Dosage: 15MG/KG, SINGLE (INJECTION OVER 7.5 MINUTES)
     Route: 042
     Dates: start: 20220721, end: 20220721
  2. FERRIC CARBOXYMALTOSE [Suspect]
     Active Substance: FERRIC CARBOXYMALTOSE
     Indication: Iron deficiency
     Dosage: 15MG/KG, SINGLE (INJECTION OVER 7.5 MINUTES)
     Route: 042
     Dates: start: 202207, end: 202207
  3. FERRIC CARBOXYMALTOSE [Suspect]
     Active Substance: FERRIC CARBOXYMALTOSE
     Dosage: 15MG/KG, SINGLE (INJECTION OVER 7.5 MINUTES) (6-MONTHS AFTER THE JULY APPOINTMENT)
     Route: 042
     Dates: start: 202301, end: 202301

REACTIONS (7)
  - Haemosiderosis [Not Recovered/Not Resolved]
  - Pain [Not Recovered/Not Resolved]
  - Infusion site pain [Not Recovered/Not Resolved]
  - Infusion site extravasation [Not Recovered/Not Resolved]
  - Emotional distress [Not Recovered/Not Resolved]
  - Anxiety [Not Recovered/Not Resolved]
  - Partner stress [Not Recovered/Not Resolved]

NARRATIVE: CASE EVENT DATE: 20220721
